FAERS Safety Report 24034505 (Version 1)
Quarter: 2024Q3

REPORT INFORMATION
  Report Type: Spontaneous
  Country: US (occurrence: US)
  Receive Date: 20240701
  Receipt Date: 20240701
  Transmission Date: 20241017
  Serious: Yes (Death, Other)
  Sender: IPCA
  Company Number: US-IPCA LABORATORIES LIMITED-IPC-2024-US-001591

PATIENT

DRUGS (5)
  1. METFORMIN [Suspect]
     Active Substance: METFORMIN HYDROCHLORIDE
     Indication: Product used for unknown indication
     Dosage: 1000 MILLIGRAM, BID
     Route: 065
  2. SITAGLIPTIN [Concomitant]
     Active Substance: SITAGLIPTIN
     Indication: Product used for unknown indication
     Dosage: 100 MILLIGRAM, QD
     Route: 065
  3. GLIPIZIDE [Concomitant]
     Active Substance: GLIPIZIDE
     Indication: Product used for unknown indication
     Dosage: 10 MILLIGRAM, QD
     Route: 065
  4. LISINOPRIL [Concomitant]
     Active Substance: LISINOPRIL
     Indication: Product used for unknown indication
     Dosage: 2.5 MILLIGRAM, QD
     Route: 065
  5. METOPROLOL SUCCINATE [Concomitant]
     Active Substance: METOPROLOL SUCCINATE
     Indication: Product used for unknown indication
     Dosage: 50 MILLIGRAM, QD
     Route: 065

REACTIONS (14)
  - Lactic acidosis [Fatal]
  - Acute kidney injury [Fatal]
  - Pancreatitis acute [Fatal]
  - Acute respiratory distress syndrome [Fatal]
  - Paralysis [Fatal]
  - Acute myocardial infarction [Fatal]
  - Acute hepatic failure [Fatal]
  - Hypoxic-ischaemic encephalopathy [Fatal]
  - Metabolic encephalopathy [Fatal]
  - Pneumonia aspiration [Fatal]
  - Sepsis [Fatal]
  - Supraventricular tachycardia [Fatal]
  - Toxicity to various agents [Fatal]
  - Condition aggravated [Fatal]
